FAERS Safety Report 11312218 (Version 1)
Quarter: 2015Q3

REPORT INFORMATION
  Report Type: Report from Study
  Country: ES (occurrence: ES)
  Receive Date: 20150727
  Receipt Date: 20150727
  Transmission Date: 20151125
  Serious: Yes (Other)
  Sender: FDA-Public Use
  Company Number: ES-TEVA-579683ISR

PATIENT
  Age: 78 Year
  Sex: Female

DRUGS (6)
  1. LISINOPRIL/HIDROCLOROTIAZIDA RATIOPHARM 20/12.5 MG TABLETS EFG, 28 TAB [Suspect]
     Active Substance: HYDROCHLOROTHIAZIDE\LISINOPRIL
     Dosage: LISINOPRIL
     Route: 048
     Dates: start: 2013
  2. ESPIRONOLACTONA [Interacting]
     Active Substance: SPIRONOLACTONE
     Indication: EPILEPSY
     Route: 048
     Dates: start: 2013, end: 20131214
  3. LISINOPRIL/HIDROCLOROTIAZIDA RATIOPHARM 20/12.5 MG TABLETS EFG, 28 TAB [Interacting]
     Active Substance: HYDROCHLOROTHIAZIDE\LISINOPRIL
     Dosage: HYDROCHLOROTHIAZIDE
     Route: 048
     Dates: start: 2013
  4. GABAPENTINA [Interacting]
     Active Substance: GABAPENTIN
     Dosage: 1125 MILLIGRAM DAILY;
     Route: 048
     Dates: start: 2013
  5. CARBAMAZEPINA [Interacting]
     Active Substance: CARBAMAZEPINE
     Dosage: 1600 MILLIGRAM DAILY;
     Route: 048
     Dates: start: 2013, end: 20131212
  6. PAROXETINE [Interacting]
     Active Substance: PAROXETINE\PAROXETINE HYDROCHLORIDE
     Route: 048
     Dates: start: 20131212

REACTIONS (2)
  - Hyponatraemia [Recovered/Resolved]
  - Drug interaction [Unknown]

NARRATIVE: CASE EVENT DATE: 2013
